FAERS Safety Report 18272360 (Version 1)
Quarter: 2020Q3

REPORT INFORMATION
  Report Type: Spontaneous
  Country: US (occurrence: US)
  Receive Date: 20200916
  Receipt Date: 20200916
  Transmission Date: 20201103
  Serious: Yes (Death)
  Sender: FDA-Public Use
  Company Number: US-ADIENNEP-2020AD000457

PATIENT
  Age: 2 Year
  Sex: Female

DRUGS (20)
  1. CISPLATIN. [Suspect]
     Active Substance: CISPLATIN
     Indication: NEOPLASM MALIGNANT
     Dates: start: 20200113, end: 20200329
  2. GRANULOCYTE COLONY STIMULATING FACTOR [Suspect]
     Active Substance: GRANULOCYTE COLONY-STIMULATING FACTOR NOS
     Indication: BONE MARROW FAILURE
     Dates: start: 20191217
  3. DOXORUBICIN HYDROCHLORIDE. [Suspect]
     Active Substance: DOXORUBICIN HYDROCHLORIDE
     Indication: NEOPLASM MALIGNANT
     Dates: start: 20200228, end: 20200229
  4. ZINECARD [Suspect]
     Active Substance: DEXRAZOXANE HYDROCHLORIDE
     Indication: PROPHYLAXIS
     Dates: start: 20200228, end: 20200229
  5. DOXORUBICIN HYDROCHLORIDE. [Suspect]
     Active Substance: DOXORUBICIN HYDROCHLORIDE
     Indication: NEOPLASM MALIGNANT
     Dates: start: 20191217
  6. ETOPOSIDE. [Suspect]
     Active Substance: ETOPOSIDE
     Indication: NEOPLASM MALIGNANT
     Dates: start: 20191217
  7. MESNA. [Suspect]
     Active Substance: MESNA
     Indication: PROPHYLAXIS
     Dates: start: 20191217
  8. CRIZOTINIB [Suspect]
     Active Substance: CRIZOTINIB
     Indication: NEUROBLASTOMA
     Dates: start: 20191217
  9. VINCRISTINE SULFATE. [Suspect]
     Active Substance: VINCRISTINE SULFATE
     Indication: NEOPLASM MALIGNANT
     Dates: start: 20200228, end: 20200228
  10. CYCLOPHOSPHAMIDE. [Suspect]
     Active Substance: CYCLOPHOSPHAMIDE
     Indication: NEOPLASM MALIGNANT
     Dates: start: 20191217
  11. ETOPOSIDE. [Suspect]
     Active Substance: ETOPOSIDE
     Indication: NEOPLASM MALIGNANT
     Dates: start: 20200205, end: 20200329
  12. CRIZOTINIB [Suspect]
     Active Substance: CRIZOTINIB
     Indication: NEUROBLASTOMA
     Dates: start: 20200205, end: 20200706
  13. CISPLATIN. [Suspect]
     Active Substance: CISPLATIN
     Indication: NEOPLASM MALIGNANT
     Dates: start: 20191217
  14. GRANULOCYTE COLONY STIMULATING FACTOR [Suspect]
     Active Substance: GRANULOCYTE COLONY-STIMULATING FACTOR NOS
     Indication: BONE MARROW FAILURE
     Dosage: 50 UG TOTAL
     Dates: start: 20200714, end: 20200715
  15. THIOTEPA. [Suspect]
     Active Substance: THIOTEPA
     Indication: NEOPLASM MALIGNANT
     Dates: start: 20191217
  16. THIOTEPA. [Suspect]
     Active Substance: THIOTEPA
     Indication: NEOPLASM MALIGNANT
     Dosage: 600 MG TOTAL
     Dates: start: 20200707, end: 20200712
  17. VINCRISTINE SULFATE. [Suspect]
     Active Substance: VINCRISTINE SULFATE
     Indication: NEOPLASM MALIGNANT
     Dates: start: 20191217
  18. CYCLOPHOSPHAMIDE. [Suspect]
     Active Substance: CYCLOPHOSPHAMIDE
     Indication: NEOPLASM MALIGNANT
     Dosage: 3000 MG TOTAL
     Dates: end: 20200712
  19. MESNA. [Suspect]
     Active Substance: MESNA
     Indication: PROPHYLAXIS
     Dosage: 3750 MG TOTAL
     Dates: start: 20200709, end: 20200712
  20. ZINECARD [Suspect]
     Active Substance: DEXRAZOXANE HYDROCHLORIDE
     Indication: PROPHYLAXIS
     Dates: start: 20191217

REACTIONS (1)
  - Multiple organ dysfunction syndrome [Fatal]

NARRATIVE: CASE EVENT DATE: 20200715
